FAERS Safety Report 4339575-X (Version None)
Quarter: 2004Q1

REPORT INFORMATION
  Report Type: 
  Country: None (occurrence: None)
  Receive Date: 20040329
  Receipt Date: 20040224
  Transmission Date: 20041129
  Serious: No
  Sender: FDA-Public Use
  Company Number: 04P-163-0251203-00

PATIENT
  Age: 73 Year
  Sex: Female
  Weight: 117.9352 kg

DRUGS (6)
  1. HUMIRA [Suspect]
     Indication: RHEUMATOID ARTHRITIS
     Dosage: 40 MG, 1 IN 2 WK, SUBCUTANEOUS
     Route: 058
     Dates: start: 20030301
  2. FERROUS SULFATE TAB [Concomitant]
  3. THYROID TAB [Concomitant]
  4. ESOMEPRAZOLE [Concomitant]
  5. GLUCOSAMINE [Concomitant]
  6. HYDROCODONE [Concomitant]

REACTIONS (1)
  - FEELING HOT [None]
